FAERS Safety Report 12284273 (Version 1)
Quarter: 2016Q2

REPORT INFORMATION
  Report Type: Spontaneous
  Country: FR (occurrence: FR)
  Receive Date: 20160420
  Receipt Date: 20160420
  Transmission Date: 20160815
  Serious: Yes (Hospitalization)
  Sender: FDA-Public Use
  Company Number: FR-ASTRAZENECA-2016SE39736

PATIENT
  Age: 35269 Day
  Sex: Female

DRUGS (6)
  1. MOPRAL [Suspect]
     Active Substance: OMEPRAZOLE SODIUM
     Indication: GASTROOESOPHAGEAL REFLUX DISEASE
     Route: 048
     Dates: end: 20150822
  2. LASILIX [Suspect]
     Active Substance: FUROSEMIDE
     Indication: HYPERTENSION
     Route: 048
     Dates: start: 20150826, end: 20150901
  3. LASILIX [Suspect]
     Active Substance: FUROSEMIDE
     Indication: HYPERTENSION
     Route: 048
     Dates: end: 20150825
  4. SERESTA [Concomitant]
     Active Substance: OXAZEPAM
  5. B12 VITAMIN [Concomitant]
  6. DOLIPRANE [Concomitant]
     Active Substance: ACETAMINOPHEN

REACTIONS (3)
  - General physical health deterioration [Recovered/Resolved]
  - Dysphagia [Unknown]
  - Hyponatraemia [Recovered/Resolved]

NARRATIVE: CASE EVENT DATE: 20150822
